FAERS Safety Report 16981178 (Version 3)
Quarter: 2019Q4

REPORT INFORMATION
  Report Type: Spontaneous
  Country: US (occurrence: US)
  Receive Date: 20191031
  Receipt Date: 20191122
  Transmission Date: 20200122
  Serious: Yes (Hospitalization)
  Sender: FDA-Public Use
  Company Number: US-ACTELION-A-NJ2019-197476

PATIENT
  Sex: Male

DRUGS (22)
  1. NORCO [Concomitant]
     Active Substance: ACETAMINOPHEN\HYDROCODONE BITARTRATE
  2. VITAMIN C [Concomitant]
     Active Substance: ASCORBIC ACID
  3. CALCIUM [Concomitant]
     Active Substance: CALCIUM
  4. PANTOPRAZOLE SODIUM. [Concomitant]
     Active Substance: PANTOPRAZOLE SODIUM
  5. SULFAMETHOXAZOLE AND TRIMETHOPRIM [Concomitant]
     Active Substance: SULFAMETHOXAZOLE\TRIMETHOPRIM
  6. CLINDAMYCIN HCL [Concomitant]
     Active Substance: CLINDAMYCIN HYDROCHLORIDE
  7. LANTUS [Concomitant]
     Active Substance: INSULIN GLARGINE
  8. ATORVASTATIN [Concomitant]
     Active Substance: ATORVASTATIN
  9. CENTRUM SILVER ADULTS 50+ [Concomitant]
     Active Substance: MINERALS\VITAMINS
  10. PRADAXA [Concomitant]
     Active Substance: DABIGATRAN ETEXILATE MESYLATE
  11. ZOLPIDEM TARTRATE. [Concomitant]
     Active Substance: ZOLPIDEM TARTRATE
  12. LOSARTAN POTASSIUM. [Concomitant]
     Active Substance: LOSARTAN POTASSIUM
  13. TRADJENTA [Concomitant]
     Active Substance: LINAGLIPTIN
  14. AMIODARONE HCL [Concomitant]
     Active Substance: AMIODARONE HYDROCHLORIDE
  15. ASPIRIN. [Concomitant]
     Active Substance: ASPIRIN
  16. CARVEDILOL. [Concomitant]
     Active Substance: CARVEDILOL
  17. FERROUS SULFATE. [Concomitant]
     Active Substance: FERROUS SULFATE
  18. JARDIANCE [Concomitant]
     Active Substance: EMPAGLIFLOZIN
  19. NITROFURANTOIN. [Concomitant]
     Active Substance: NITROFURANTOIN
  20. OPSUMIT [Suspect]
     Active Substance: MACITENTAN
     Indication: PULMONARY ARTERIAL HYPERTENSION
     Dosage: 10 MG
     Route: 048
     Dates: end: 2019
  21. METFORMIN HCL [Concomitant]
     Active Substance: METFORMIN HYDROCHLORIDE
  22. TORSEMIDE. [Concomitant]
     Active Substance: TORSEMIDE

REACTIONS (2)
  - Adverse event [Not Recovered/Not Resolved]
  - Condition aggravated [Unknown]
